FAERS Safety Report 8124641-3 (Version None)
Quarter: 2012Q1

REPORT INFORMATION
  Report Type: 
  Country: None (occurrence: None)
  Receive Date: 20120209
  Receipt Date: 20120209
  Transmission Date: 20120608
  Serious: Yes (Other)
  Sender: FDA-Public Use
  Company Number: None

PATIENT
  Age: 53 Year
  Sex: Female
  Weight: 70.306 kg

DRUGS (1)
  1. RECLAST [Suspect]

REACTIONS (9)
  - CHILLS [None]
  - DIZZINESS [None]
  - PAIN IN JAW [None]
  - CHEST PAIN [None]
  - MALAISE [None]
  - MYALGIA [None]
  - GINGIVITIS [None]
  - PYREXIA [None]
  - ARTHRALGIA [None]
